FAERS Safety Report 5940606-1 (Version None)
Quarter: 2008Q4

REPORT INFORMATION
  Report Type: 
  Country: None (occurrence: None)
  Receive Date: 20081103
  Receipt Date: 20081103
  Transmission Date: 20090506
  Serious: Yes (Other)
  Sender: FDA-Public Use
  Company Number: None

PATIENT
  Sex: Male

DRUGS (1)
  1. MOBIC [Suspect]
     Indication: MUSCULOSKELETAL PAIN
     Dosage: 15MG 1 PO
     Route: 048
     Dates: start: 20081027

REACTIONS (6)
  - BLISTER [None]
  - BLOOD PRESSURE INCREASED [None]
  - ERYTHEMA [None]
  - HYPOAESTHESIA FACIAL [None]
  - PRURITUS [None]
  - WOUND SECRETION [None]
